FAERS Safety Report 5737958-4 (Version None)
Quarter: 2008Q2

REPORT INFORMATION
  Report Type: 
  Country: None (occurrence: None)
  Receive Date: 20080512
  Receipt Date: 20080512
  Transmission Date: 20081010
  Serious: Yes (Hospitalization)
  Sender: FDA-Public Use
  Company Number: None

PATIENT
  Sex: Female
  Weight: 98.4 kg

DRUGS (2)
  1. ERBITUX [Suspect]
     Dosage: 114 MG
     Dates: end: 20080505
  2. DIHYPENHYDRAMINE [Concomitant]

REACTIONS (1)
  - ANAPHYLACTIC REACTION [None]
